FAERS Safety Report 11010956 (Version 3)
Quarter: 2015Q2

REPORT INFORMATION
  Report Type: Spontaneous
  Country: GB (occurrence: GB)
  Receive Date: 20150410
  Receipt Date: 20150423
  Transmission Date: 20150821
  Serious: Yes (Disabling, Other)
  Sender: FDA-Public Use
  Company Number: GB-TAKEDA-2015MPI002187

PATIENT

DRUGS (10)
  1. COTRIMOXAZOLE [Concomitant]
     Active Substance: SULFAMETHOXAZOLE\TRIMETHOPRIM
     Dosage: UNK, TID
     Route: 050
     Dates: start: 20150106
  2. OMEPRAZOLE. [Concomitant]
     Active Substance: OMEPRAZOLE
     Dosage: 20 MG, QD
     Route: 048
     Dates: start: 20150106
  3. ACYCLOVIR                          /00587301/ [Concomitant]
     Active Substance: ACYCLOVIR
     Dosage: 400 MG, BID
     Route: 048
     Dates: start: 20150106
  4. VELCADE [Suspect]
     Active Substance: BORTEZOMIB
     Indication: PLASMA CELL MYELOMA
     Dosage: 1 MG/M2, UNK
     Route: 042
     Dates: start: 20150331
  5. TINZAPARIN [Concomitant]
     Active Substance: TINZAPARIN
     Dosage: 2500 IU, UNK
     Route: 058
     Dates: start: 20150106
  6. THALIDOMIDE [Concomitant]
     Active Substance: THALIDOMIDE
     Dosage: 100 MG, UNK
     Route: 048
     Dates: start: 20150106
  7. DEXAMETHASONE. [Concomitant]
     Active Substance: DEXAMETHASONE
     Dosage: 40 MG, UNK
     Route: 048
     Dates: start: 20150106
  8. FLUCONAZOLE. [Concomitant]
     Active Substance: FLUCONAZOLE
     Dosage: 50 MG, UNK
     Route: 044
     Dates: start: 20150106
  9. ALLOPURINOL                        /00003302/ [Concomitant]
     Active Substance: ALLOPURINOL
     Dosage: 300 MG, QD
     Route: 048
     Dates: start: 20150106
  10. VELCADE [Suspect]
     Active Substance: BORTEZOMIB
     Dosage: 3.5 MG, UNK
     Route: 042
     Dates: start: 20150324

REACTIONS (3)
  - Pain in extremity [Recovered/Resolved]
  - Abasia [Unknown]
  - Neuropathy peripheral [Not Recovered/Not Resolved]

NARRATIVE: CASE EVENT DATE: 20150324
